FAERS Safety Report 10872030 (Version 2)
Quarter: 2015Q1

REPORT INFORMATION
  Report Type: Spontaneous
  Country: NZ (occurrence: NZ)
  Receive Date: 20150226
  Receipt Date: 20150310
  Transmission Date: 20150721
  Serious: Yes (Other)
  Sender: FDA-Public Use
  Company Number: NZ-MYLANLABS-2015M1004749

PATIENT

DRUGS (3)
  1. PAXAM [Suspect]
     Active Substance: CLONAZEPAM
     Indication: PRODUCT USED FOR UNKNOWN INDICATION
     Dosage: UNK
  2. PAXAM [Suspect]
     Active Substance: CLONAZEPAM
     Dosage: 0.25 MG, TID
     Route: 048
     Dates: start: 2002, end: 20150212
  3. PAXAM [Suspect]
     Active Substance: CLONAZEPAM
     Dosage: 0.25 MG, UNK
     Dates: start: 20150213

REACTIONS (8)
  - Memory impairment [Recovering/Resolving]
  - Disorientation [Recovering/Resolving]
  - Dysgraphia [Not Recovered/Not Resolved]
  - Palpitations [Not Recovered/Not Resolved]
  - Drug withdrawal syndrome [Not Recovered/Not Resolved]
  - Confusional state [Recovering/Resolving]
  - Headache [Recovering/Resolving]
  - Visual impairment [Recovering/Resolving]

NARRATIVE: CASE EVENT DATE: 20150213
